FAERS Safety Report 20146792 (Version 1)
Quarter: 2021Q4

REPORT INFORMATION
  Report Type: Spontaneous
  Country: US (occurrence: US)
  Receive Date: 20211203
  Receipt Date: 20211203
  Transmission Date: 20220303
  Serious: No
  Sender: FDA-Public Use
  Company Number: US-INSUD PHARMA-2111US02816

PATIENT

DRUGS (3)
  1. PROGESTERONE [Suspect]
     Active Substance: PROGESTERONE
     Indication: Hormone replacement therapy
     Dosage: 100 MG ONCE DAILY
     Route: 048
     Dates: start: 202110
  2. ESTROGENS [Concomitant]
     Active Substance: ESTROGENS
  3. TESTOSTERONE [Concomitant]
     Active Substance: TESTOSTERONE

REACTIONS (2)
  - Progesterone decreased [Not Recovered/Not Resolved]
  - Off label use [Not Recovered/Not Resolved]
